FAERS Safety Report 5454696-6 (Version None)
Quarter: 2007Q3

REPORT INFORMATION
  Report Type: 
  Country: None (occurrence: None)
  Receive Date: 20070917
  Receipt Date: 20061002
  Transmission Date: 20080115
  Serious: No
  Sender: FDA-Public Use
  Company Number: US-ASTRAZENECA-2006UW19087

PATIENT
  Age: 54 Year
  Sex: Male

DRUGS (3)
  1. SEROQUEL [Suspect]
     Indication: SCHIZOAFFECTIVE DISORDER
     Dosage: TITRATING SEROQUEL
     Route: 048
     Dates: start: 20060925
  2. ANTIHYPERTENSIVE [Concomitant]
     Indication: HYPERTENSION
  3. STATIN [Concomitant]
     Indication: HYPERLIPIDAEMIA

REACTIONS (2)
  - FEELING JITTERY [None]
  - PARANOIA [None]
